FAERS Safety Report 7302981-5 (Version None)
Quarter: 2011Q1

REPORT INFORMATION
  Report Type: 
  Country: None (occurrence: None)
  Receive Date: 20110220
  Receipt Date: 20110209
  Transmission Date: 20110831
  Serious: Yes (Death, Life-Threatening, Hospitalization, Other)
  Sender: FDA-Public Use
  Company Number: JP-BRISTOL-MYERS SQUIBB COMPANY-14563340

PATIENT
  Age: 53 Year
  Sex: Female

DRUGS (15)
  1. PREDNISOLONE [Concomitant]
     Route: 048
     Dates: start: 20090311, end: 20090317
  2. VITAMEDIN [Concomitant]
     Dosage: 1DF=1 A/D FORM:INJ
     Route: 042
     Dates: start: 20090324, end: 20090324
  3. GASTER D [Concomitant]
     Dosage: TAKEN FROM 11MAR2009-17MAR2009 19MAR2009-21MAR2009
     Route: 048
     Dates: start: 20090311, end: 20090319
  4. PASTARON [Concomitant]
     Route: 062
  5. GLYBURIDE [Concomitant]
     Route: 048
     Dates: start: 20090311, end: 20090317
  6. PROGRAF [Suspect]
     Dosage: PROGRAF GRANULES 11-17MAR09 0.2G/D 19-20MAR09 0.1G/D 20-21MAR09 0.2G/D
     Route: 048
     Dates: start: 20090311, end: 20090321
  7. CRAVIT [Concomitant]
     Dosage: TAKEN FROM 11MAR2009-17MAR2009 19MAR2009-21MAR2009
     Route: 048
     Dates: start: 20090311, end: 20090321
  8. LENDORMIN [Concomitant]
     Dosage: TAKEN FROM 11MAR2009-17MAR2009 19MAR2009-21MAR2009
     Route: 048
     Dates: start: 20090311, end: 20090321
  9. SPRYCEL [Suspect]
     Indication: ACUTE LYMPHOCYTIC LEUKAEMIA
     Dosage: INITIATED ON 11MAR09
     Route: 048
     Dates: start: 20090311, end: 20090321
  10. BAKTAR [Concomitant]
     Dosage: TAKEN ON 12MAR2009, 16MAR2009, 19MAR2009
     Route: 048
     Dates: start: 20090312, end: 20090319
  11. XYLOCAINE [Concomitant]
  12. VFEND [Concomitant]
     Dosage: TAKEN FROM 11MAR2009-17MAR2009 19MAR2009-21MAR2009
     Route: 048
     Dates: start: 20090311, end: 20090321
  13. GLYBURIDE [Concomitant]
     Dosage: TAKEN FROM 16MAR2009-17MAR2009 19MAR2009-21MAR2009
     Route: 048
     Dates: start: 20090316, end: 20090321
  14. AZUNOL [Concomitant]
     Dosage: GARGLE LIQUID
  15. LASIX [Concomitant]
     Route: 042
     Dates: start: 20090316, end: 20090324

REACTIONS (12)
  - INTERSTITIAL LUNG DISEASE [None]
  - PLATELET COUNT DECREASED [None]
  - HAEMATURIA [None]
  - INFECTION [None]
  - PLEURAL EFFUSION [None]
  - ANAEMIA [None]
  - HEPATIC FUNCTION ABNORMAL [None]
  - RESPIRATORY DISORDER [None]
  - PULMONARY HAEMORRHAGE [None]
  - THROMBOTIC MICROANGIOPATHY [None]
  - CHRONIC GRAFT VERSUS HOST DISEASE [None]
  - LYMPHOCYTE COUNT DECREASED [None]
